FAERS Safety Report 20864458 (Version 14)
Quarter: 2023Q2

REPORT INFORMATION
  Report Type: Report from Study
  Country: US (occurrence: US)
  Receive Date: 20220524
  Receipt Date: 20230626
  Transmission Date: 20230722
  Serious: Yes (Death, Hospitalization)
  Sender: FDA-Public Use
  Company Number: US-NOVARTISTESTPH-NVSC2022US118356

PATIENT
  Age: 75 Year
  Sex: Female
  Weight: 113.38 kg

DRUGS (7)
  1. TREPROSTINIL [Suspect]
     Active Substance: TREPROSTINIL
     Indication: Pulmonary arterial hypertension
     Dosage: 81 NG/KG/MIN, CONT
     Route: 058
     Dates: start: 20210511
  2. TREPROSTINIL [Suspect]
     Active Substance: TREPROSTINIL
     Dosage: 81 NG/KG/MIN, CONT
     Route: 058
     Dates: start: 20210901
  3. SILDENAFIL CITRATE [Concomitant]
     Active Substance: SILDENAFIL CITRATE
     Indication: Product used for unknown indication
     Dosage: 20 (UNITS NOT SPECIFIED), TID
     Route: 065
  4. LECITHIN\POLOXAMER 407 [Concomitant]
     Active Substance: LECITHIN\POLOXAMER 407
     Indication: Product used for unknown indication
     Dosage: UNK
     Route: 065
  5. OPSUMIT [Concomitant]
     Active Substance: MACITENTAN
     Indication: Product used for unknown indication
     Dosage: UNK
     Route: 065
  6. OPSUMIT [Concomitant]
     Active Substance: MACITENTAN
     Dosage: 10 MG, QD
     Route: 065
  7. REMODULIN [Concomitant]
     Active Substance: TREPROSTINIL
     Indication: Product used for unknown indication
     Dosage: UNK
     Route: 065

REACTIONS (16)
  - Pulmonary hypertension [Fatal]
  - Reynold^s syndrome [Unknown]
  - Scleroderma [Unknown]
  - Acute respiratory failure [Unknown]
  - Urinary tract infection [Unknown]
  - Malaise [Unknown]
  - Influenza like illness [Unknown]
  - Somnolence [Unknown]
  - Brain fog [Unknown]
  - Gait inability [Unknown]
  - Pruritus [Unknown]
  - Diarrhoea [Unknown]
  - Injection site pustule [Recovering/Resolving]
  - Application site pain [Unknown]
  - Incorrect dose administered [Unknown]
  - Drug ineffective [Unknown]

NARRATIVE: CASE EVENT DATE: 20230609
